FAERS Safety Report 5728156-9 (Version None)
Quarter: 2008Q2

REPORT INFORMATION
  Report Type: 
  Country: None (occurrence: None)
  Receive Date: 20080430
  Receipt Date: 20080417
  Transmission Date: 20081010
  Serious: Yes (Death)
  Sender: FDA-Public Use
  Company Number: US023292

PATIENT
  Sex: Female

DRUGS (2)
  1. ACTIQ [Suspect]
     Indication: BACK PAIN
     Dosage: BUCCAL
     Route: 002
  2. OXYCONTIN [Suspect]

REACTIONS (2)
  - DRUG PRESCRIBING ERROR [None]
  - OVERDOSE [None]
